FAERS Safety Report 7067727-7 (Version None)
Quarter: 2010Q4

REPORT INFORMATION
  Report Type: 
  Country: None (occurrence: None)
  Receive Date: 20101006
  Receipt Date: 20100226
  Transmission Date: 20110411
  Serious: No
  Sender: FDA-Public Use
  Company Number: US-144941

PATIENT
  Age: 50 Year
  Sex: Male

DRUGS (1)
  1. HEPAGAM B [Suspect]
     Indication: HEPATITIS B IMMUNISATION
     Dosage: (1 ML INTRAMUSCULAR)
     Route: 030

REACTIONS (2)
  - DRUG DISPENSING ERROR [None]
  - WRONG DRUG ADMINISTERED [None]
